FAERS Safety Report 4352790-4 (Version None)
Quarter: 2004Q2

REPORT INFORMATION
  Report Type: 
  Country: None (occurrence: None)
  Receive Date: 20040429
  Receipt Date: 20040420
  Transmission Date: 20050107
  Serious: Yes (Death)
  Sender: FDA-Public Use
  Company Number: KII-1998-0009597

PATIENT
  Sex: Female

DRUGS (1)
  1. OXYCONTIN [Suspect]
     Indication: CANCER PAIN
     Dosage: UNK; 40 MG, Q12H, UNKNOWN; 20 MG, BID, UNKNOWN; 10 MG, BID, UNKNOWN
     Route: 065

REACTIONS (2)
  - CONDITION AGGRAVATED [None]
  - METASTASIS [None]
